FAERS Safety Report 4567059-2 (Version None)
Quarter: 2005Q1

REPORT INFORMATION
  Report Type: 
  Country: None (occurrence: None)
  Receive Date: 20050201
  Receipt Date: 20041006
  Transmission Date: 20050727
  Serious: Yes (Other)
  Sender: FDA-Public Use
  Company Number: US-ROCHE-382773

PATIENT
  Age: 50 Year
  Sex: Female

DRUGS (6)
  1. PEGASYS [Suspect]
     Indication: HEPATITIS C
     Route: 058
     Dates: start: 20040722
  2. COPEGUS [Suspect]
     Indication: HEPATITIS C
     Route: 048
  3. COPEGUS [Suspect]
     Dosage: 600 MG TAKEN AM AND 400 MG TAKEN PM.
     Route: 048
     Dates: start: 20040722
  4. PREVACID [Concomitant]
     Route: 065
  5. SOMA [Concomitant]
     Route: 065
  6. WELLBUTRIN [Concomitant]
     Indication: PROPHYLAXIS
     Route: 065
     Dates: start: 20040615

REACTIONS (12)
  - ABDOMINAL PAIN UPPER [None]
  - CRYING [None]
  - DEPRESSION [None]
  - FATIGUE [None]
  - HAEMOGLOBIN DECREASED [None]
  - INFECTION [None]
  - INJECTION SITE ERYTHEMA [None]
  - INJECTION SITE PAIN [None]
  - NAUSEA [None]
  - RED BLOOD CELL COUNT DECREASED [None]
  - THYROID FUNCTION TEST ABNORMAL [None]
  - THYROID NEOPLASM [None]
